FAERS Safety Report 25153257 (Version 2)
Quarter: 2025Q2

REPORT INFORMATION
  Report Type: Spontaneous
  Country: US (occurrence: US)
  Receive Date: 20250403
  Receipt Date: 20250416
  Transmission Date: 20250716
  Serious: Yes (Hospitalization)
  Sender: TEVA
  Company Number: US-TEVA-VS-3314579

PATIENT
  Age: 55 Year
  Sex: Female

DRUGS (5)
  1. BUSPIRONE [Suspect]
     Active Substance: BUSPIRONE HYDROCHLORIDE
     Indication: Anxiety
     Route: 065
  2. CLONIDINE [Suspect]
     Active Substance: CLONIDINE
     Indication: Secondary hypertension
     Route: 065
  3. CARVEDILOL [Suspect]
     Active Substance: CARVEDILOL
     Indication: Hypertensive urgency
     Route: 065
  4. LISINOPRIL [Suspect]
     Active Substance: LISINOPRIL
     Indication: Secondary hypertension
     Route: 065
  5. METOPROLOL [Suspect]
     Active Substance: METOPROLOL
     Indication: Secondary hypertension
     Route: 050

REACTIONS (3)
  - Secondary hypertension [Recovering/Resolving]
  - Drug ineffective [Unknown]
  - Hypertensive urgency [Recovering/Resolving]
